FAERS Safety Report 18764893 (Version 1)
Quarter: 2021Q1

REPORT INFORMATION
  Report Type: Spontaneous
  Country: US (occurrence: US)
  Receive Date: 20210120
  Receipt Date: 20210120
  Transmission Date: 20210419
  Serious: No
  Sender: FDA-Public Use
  Company Number: US-BAYER-2021-028059

PATIENT
  Age: 69 Year
  Sex: Female

DRUGS (2)
  1. ALEVE [Suspect]
     Active Substance: NAPROXEN SODIUM
     Indication: PROCEDURAL PAIN
     Dosage: UNK UNK, QD
     Dates: start: 2008
  2. ALEVE [Suspect]
     Active Substance: NAPROXEN SODIUM
     Indication: PROCEDURAL PAIN
     Route: 065

REACTIONS (4)
  - Product packaging difficult to open [None]
  - Off label use [Unknown]
  - Drug effective for unapproved indication [Unknown]
  - Product package associated injury [None]
